FAERS Safety Report 23601459 (Version 1)
Quarter: 2024Q1

REPORT INFORMATION
  Report Type: Report from Study
  Country: CA (occurrence: CA)
  Receive Date: 20240306
  Receipt Date: 20240306
  Transmission Date: 20240410
  Serious: Yes (Other)
  Sender: FDA-Public Use
  Company Number: CA-SANDOZ-SDZ2023CA050992

PATIENT
  Sex: Male

DRUGS (2)
  1. HYRIMOZ [Suspect]
     Active Substance: ADALIMUMAB-ADAZ
     Indication: Diverticulum intestinal
     Dosage: 40 MG
     Route: 058
     Dates: start: 20220503, end: 202305
  2. HYRIMOZ [Suspect]
     Active Substance: ADALIMUMAB-ADAZ
     Dosage: 40 MG
     Route: 058

REACTIONS (5)
  - Hidradenitis [Unknown]
  - Postoperative abscess [Unknown]
  - Abdominal abscess [Unknown]
  - Abdominal hernia [Unknown]
  - Therapy interrupted [Unknown]
